FAERS Safety Report 14341634 (Version 1)
Quarter: 2018Q1

REPORT INFORMATION
  Report Type: Spontaneous
  Country: GB (occurrence: GB)
  Receive Date: 20180102
  Receipt Date: 20180102
  Transmission Date: 20180509
  Serious: Yes (Other)
  Sender: FDA-Public Use
  Company Number: GB-GILEAD-2017-0313072

PATIENT
  Age: 51 Year
  Sex: Male

DRUGS (5)
  1. RITONAVIR. [Concomitant]
     Active Substance: RITONAVIR
  2. EPIVIR [Concomitant]
     Active Substance: LAMIVUDINE
  3. LAMIVUDINE. [Concomitant]
     Active Substance: LAMIVUDINE
  4. TENOFOVIR DISOPROXIL FUMARATE. [Suspect]
     Active Substance: TENOFOVIR DISOPROXIL FUMARATE
     Indication: HIV INFECTION
     Dosage: 245 MG, UNK
     Route: 048
  5. ATAZANAVIR. [Concomitant]
     Active Substance: ATAZANAVIR SULFATE

REACTIONS (5)
  - Neuropsychiatric syndrome [Not Recovered/Not Resolved]
  - Anxiety [Not Recovered/Not Resolved]
  - Insomnia [Not Recovered/Not Resolved]
  - Product substitution issue [Unknown]
  - Euphoric mood [Not Recovered/Not Resolved]
